FAERS Safety Report 9187363 (Version 1)
Quarter: 2013Q1

REPORT INFORMATION
  Report Type: Spontaneous
  Country: SE (occurrence: SE)
  Receive Date: 20130325
  Receipt Date: 20130325
  Transmission Date: 20140127
  Serious: Yes (Other)
  Sender: FDA-Public Use
  Company Number: SE-UCBSA-081060

PATIENT
  Sex: 0

DRUGS (4)
  1. KEPPRA [Suspect]
     Indication: EPILEPSY
     Dosage: UNKNOWN DOSE
  2. LAMICTAL [Concomitant]
     Indication: EPILEPSY
     Dosage: UNKNOWN DOSE
  3. ERGENYL [Concomitant]
     Indication: EPILEPSY
     Dosage: UNKNOWN DOSE
  4. FRISIUM [Concomitant]
     Indication: EPILEPSY
     Dosage: UNKNOWN DOSE

REACTIONS (1)
  - Ventricular extrasystoles [Unknown]
